FAERS Safety Report 15978922 (Version 1)
Quarter: 2019Q1

REPORT INFORMATION
  Report Type: Spontaneous
  Country: JP (occurrence: JP)
  Receive Date: 20190219
  Receipt Date: 20190219
  Transmission Date: 20190418
  Serious: Yes (Death, Hospitalization, Other)
  Sender: FDA-Public Use
  Company Number: JP-TEVA-2019-JP-1013938

PATIENT
  Age: 75 Year
  Sex: Male

DRUGS (16)
  1. DOCETAXEL. [Suspect]
     Active Substance: DOCETAXEL
     Indication: METASTASES TO BONE
  2. TEGAFUR/URACIL [Suspect]
     Active Substance: TEGAFUR\URACIL
     Indication: PROSTATE CANCER
     Route: 065
  3. FLUTAMIDE. [Suspect]
     Active Substance: FLUTAMIDE
     Indication: METASTASES TO BONE
  4. ENZALUTAMIDE [Suspect]
     Active Substance: ENZALUTAMIDE
     Indication: METASTASES TO BONE
  5. ZOLEDRONIC ACID [Suspect]
     Active Substance: ZOLEDRONIC ACID
     Indication: METASTASES TO BONE
  6. CABAZITAXEL [Suspect]
     Active Substance: CABAZITAXEL
     Indication: PROSTATE CANCER
     Route: 065
  7. ABIRATERONE ACETIC ESTER [Suspect]
     Active Substance: ABIRATERONE ACETATE
     Indication: METASTASES TO BONE
  8. DOCETAXEL. [Suspect]
     Active Substance: DOCETAXEL
     Indication: PROSTATE CANCER
     Route: 065
  9. ESTRAMUSTINE [Suspect]
     Active Substance: ESTRAMUSTINE
     Indication: METASTASES TO BONE
  10. ZOLEDRONIC ACID [Suspect]
     Active Substance: ZOLEDRONIC ACID
     Indication: PROSTATE CANCER
     Dosage: RECEIVED A TOTAL DOSE OF 48 MG
     Route: 065
  11. FLUTAMIDE. [Suspect]
     Active Substance: FLUTAMIDE
     Indication: PROSTATE CANCER
     Route: 065
  12. ABIRATERONE ACETIC ESTER [Suspect]
     Active Substance: ABIRATERONE ACETATE
     Indication: PROSTATE CANCER
     Route: 065
  13. ESTRAMUSTINE [Suspect]
     Active Substance: ESTRAMUSTINE
     Indication: PROSTATE CANCER
     Route: 065
  14. CABAZITAXEL [Suspect]
     Active Substance: CABAZITAXEL
     Indication: METASTASES TO BONE
  15. ENZALUTAMIDE [Suspect]
     Active Substance: ENZALUTAMIDE
     Indication: PROSTATE CANCER
     Route: 065
  16. TEGAFUR/URACIL [Suspect]
     Active Substance: TEGAFUR\URACIL
     Indication: METASTASES TO BONE

REACTIONS (5)
  - Osteonecrosis of jaw [Not Recovered/Not Resolved]
  - Haemorrhage [Not Recovered/Not Resolved]
  - Stupor [Unknown]
  - Shock haemorrhagic [Fatal]
  - Altered state of consciousness [Not Recovered/Not Resolved]
